FAERS Safety Report 9911558 (Version 1)
Quarter: 2014Q1

REPORT INFORMATION
  Report Type: Report from Study
  Country: AR (occurrence: AR)
  Receive Date: 20140219
  Receipt Date: 20140219
  Transmission Date: 20141002
  Serious: Yes (Death, Hospitalization, Other)
  Sender: FDA-Public Use
  Company Number: PHHY2014AR019915

PATIENT
  Sex: Male

DRUGS (2)
  1. DIOVAN [Suspect]
     Indication: HYPERTENSION
     Dosage: 320 MG, UKN
     Route: 048
  2. DIOVAN [Suspect]
     Indication: ARRHYTHMIA

REACTIONS (2)
  - Death [Fatal]
  - Lung neoplasm malignant [Unknown]
